FAERS Safety Report 14361959 (Version 6)
Quarter: 2018Q4

REPORT INFORMATION
  Report Type: Report from Study
  Country: US (occurrence: US)
  Receive Date: 20180108
  Receipt Date: 20181116
  Transmission Date: 20190204
  Serious: No
  Sender: FDA-Public Use
  Company Number: PHEH2018US000606

PATIENT
  Age: 46 Year
  Sex: Female

DRUGS (3)
  1. GILENYA [Suspect]
     Active Substance: FINGOLIMOD HYDROCHLORIDE
     Indication: MULTIPLE SCLEROSIS
     Dosage: 0.5 MG, QD
     Route: 065
     Dates: start: 20170628
  2. GILENYA [Suspect]
     Active Substance: FINGOLIMOD HYDROCHLORIDE
     Dosage: 0.5 MG, QD
     Route: 048
     Dates: start: 20180131
  3. LEXAPRO [Concomitant]
     Active Substance: ESCITALOPRAM OXALATE
     Indication: PRODUCT USED FOR UNKNOWN INDICATION
     Route: 065

REACTIONS (11)
  - Musculoskeletal stiffness [Unknown]
  - Ear pain [Not Recovered/Not Resolved]
  - Central nervous system lesion [Not Recovered/Not Resolved]
  - Respiratory symptom [Unknown]
  - Pain [Unknown]
  - Fatigue [Unknown]
  - White blood cell count decreased [Unknown]
  - Pyrexia [Unknown]
  - Stomatitis [Unknown]
  - Oropharyngeal pain [Not Recovered/Not Resolved]
  - Food allergy [Unknown]

NARRATIVE: CASE EVENT DATE: 20171125
